FAERS Safety Report 4470229-5 (Version None)
Quarter: 2004Q4

REPORT INFORMATION
  Report Type: 
  Country: None (occurrence: None)
  Receive Date: 20041008
  Receipt Date: 20040922
  Transmission Date: 20050328
  Serious: Yes (Disabling)
  Sender: FDA-Public Use
  Company Number: US-MERCK-0409USA01977

PATIENT
  Age: 40 Year
  Sex: Male

DRUGS (1)
  1. VIOXX [Suspect]
     Route: 065

REACTIONS (3)
  - CARPAL TUNNEL SYNDROME [None]
  - CHEST PAIN [None]
  - HYPERSENSITIVITY [None]
